FAERS Safety Report 5984228-5 (Version None)
Quarter: 2008Q4

REPORT INFORMATION
  Report Type: 
  Country: None (occurrence: None)
  Receive Date: 20081208
  Receipt Date: 20080318
  Transmission Date: 20090506
  Serious: No
  Sender: FDA-Public Use
  Company Number: US-BRISTOL-MYERS SQUIBB COMPANY-14119226

PATIENT
  Age: 80 Year
  Sex: Male
  Weight: 68 kg

DRUGS (10)
  1. QUESTRAN LIGHT [Suspect]
     Indication: BLOOD CHOLESTEROL INCREASED
     Dosage: 3 DOSAGE FORM = 3 PACKETS, WITH THE SECOND DOSE AT BEDTIME. PREVIOUSLY 2 PACKETS TID
  2. ALTACE [Concomitant]
  3. TRICOR [Concomitant]
  4. PRILOSEC [Concomitant]
  5. MULTI-VITAMIN [Concomitant]
  6. CALTRATE [Concomitant]
  7. GLUCOSAMINE [Concomitant]
  8. CHONDROITIN [Concomitant]
  9. ASPIRIN [Concomitant]
  10. PAXIL [Concomitant]
     Dosage: 1 DOSAGE FORM = 1/2 TABLET.

REACTIONS (2)
  - DYSPHAGIA [None]
  - OROPHARYNGEAL PAIN [None]
